FAERS Safety Report 9828289 (Version 1)
Quarter: 2014Q1

REPORT INFORMATION
  Report Type: Spontaneous
  Country: US (occurrence: US)
  Receive Date: 20140117
  Receipt Date: 20140117
  Transmission Date: 20141002
  Serious: Yes (Death, Hospitalization)
  Sender: FDA-Public Use
  Company Number: US-BRISTOL-MYERS SQUIBB COMPANY-20009205

PATIENT
  Sex: 0

DRUGS (2)
  1. BYETTA [Suspect]
  2. GLIPIZIDE [Suspect]

REACTIONS (1)
  - Death [Fatal]
